FAERS Safety Report 21562469 (Version 1)
Quarter: 2022Q4

REPORT INFORMATION
  Report Type: Report from Study
  Country: US (occurrence: US)
  Receive Date: 20221107
  Receipt Date: 20221107
  Transmission Date: 20230113
  Serious: No
  Sender: FDA-Public Use
  Company Number: US-ABBVIE-4190110

PATIENT
  Sex: Female

DRUGS (1)
  1. IMBRUVICA [Suspect]
     Active Substance: IBRUTINIB
     Indication: Chronic lymphocytic leukaemia
     Route: 048
     Dates: start: 201901

REACTIONS (8)
  - Muscle spasms [Unknown]
  - Gastric disorder [Unknown]
  - White blood cell count abnormal [Unknown]
  - Dyspepsia [Unknown]
  - Cystitis [Unknown]
  - Urinary tract infection [Unknown]
  - Fatigue [Unknown]
  - Unevaluable event [Unknown]
